FAERS Safety Report 18024768 (Version 1)
Quarter: 2020Q3

REPORT INFORMATION
  Report Type: Spontaneous
  Country: US (occurrence: US)
  Receive Date: 20200714
  Receipt Date: 20200714
  Transmission Date: 20201103
  Serious: Yes (Hospitalization)
  Sender: FDA-Public Use
  Company Number: None

PATIENT
  Age: 64 Year
  Sex: Male
  Weight: 127 kg

DRUGS (1)
  1. WARFARIN (WARFARIN NA (EXELAN) 5MG TAB) [Suspect]
     Active Substance: WARFARIN SODIUM
     Indication: ATRIAL FIBRILLATION
     Dates: start: 20121012, end: 20200107

REACTIONS (5)
  - Subdural haemorrhage [None]
  - Urinary tract infection [None]
  - Haematocrit decreased [None]
  - Haemoglobin decreased [None]
  - Bradycardia [None]

NARRATIVE: CASE EVENT DATE: 20200107
